FAERS Safety Report 6798996-6 (Version None)
Quarter: 2010Q2

REPORT INFORMATION
  Report Type: 
  Country: None (occurrence: None)
  Receive Date: 20100616
  Receipt Date: 20100601
  Transmission Date: 20101027
  Serious: Yes (Hospitalization)
  Sender: FDA-Public Use
  Company Number: US-JNJFOC-20100202689

PATIENT
  Age: 73 Year
  Sex: Female
  Weight: 63 kg

DRUGS (3)
  1. DECITABINE (DECITABINE) LYOPHILIZED POWDER [Suspect]
     Indication: ACUTE MYELOID LEUKAEMIA
     Dosage: 20 MG/M2, IN 1 DAY, INTRAVENOUS; 20 MG/M2, IN 1 DAY, INTRAVENOUS; 20 MG/M2, IN 1 DAY, INTRAVENOUS
     Route: 042
     Dates: start: 20100107, end: 20100116
  2. DECITABINE (DECITABINE) LYOPHILIZED POWDER [Suspect]
     Indication: ACUTE MYELOID LEUKAEMIA
     Dosage: 20 MG/M2, IN 1 DAY, INTRAVENOUS; 20 MG/M2, IN 1 DAY, INTRAVENOUS; 20 MG/M2, IN 1 DAY, INTRAVENOUS
     Route: 042
     Dates: start: 20100204, end: 20100208
  3. DECITABINE (DECITABINE) LYOPHILIZED POWDER [Suspect]
     Indication: ACUTE MYELOID LEUKAEMIA
     Dosage: 20 MG/M2, IN 1 DAY, INTRAVENOUS; 20 MG/M2, IN 1 DAY, INTRAVENOUS; 20 MG/M2, IN 1 DAY, INTRAVENOUS
     Route: 042
     Dates: start: 20091010

REACTIONS (16)
  - ANAEMIA [None]
  - CELLULITIS [None]
  - COUGH [None]
  - DEEP VEIN THROMBOSIS [None]
  - DEVICE RELATED INFECTION [None]
  - DIZZINESS [None]
  - ESCHERICHIA BACTERAEMIA [None]
  - FALL [None]
  - MUSCULOSKELETAL PAIN [None]
  - NEUTROPENIA [None]
  - OEDEMA PERIPHERAL [None]
  - ORAL CANDIDIASIS [None]
  - ORTHOSTATIC HYPOTENSION [None]
  - PSEUDOMONAL BACTERAEMIA [None]
  - PULMONARY EMBOLISM [None]
  - STAPHYLOCOCCAL PHARYNGITIS [None]
